FAERS Safety Report 10287104 (Version 3)
Quarter: 2014Q3

REPORT INFORMATION
  Report Type: Report from Study
  Country: US (occurrence: US)
  Receive Date: 20140709
  Receipt Date: 20140919
  Transmission Date: 20150326
  Serious: Yes (Hospitalization)
  Sender: FDA-Public Use
  Company Number: US-SA-2014SA087665

PATIENT
  Age: 60 Year
  Sex: Female
  Weight: 90.72 kg

DRUGS (1)
  1. LANTUS [Suspect]
     Active Substance: INSULIN GLARGINE
     Indication: TYPE 2 DIABETES MELLITUS
     Dosage: AS NEEDED DOSE:45 UNIT(S)
     Route: 065

REACTIONS (9)
  - Escherichia infection [Not Recovered/Not Resolved]
  - Drug administration error [Unknown]
  - Haemorrhage [Not Recovered/Not Resolved]
  - Kidney infection [Not Recovered/Not Resolved]
  - Ureteral disorder [Not Recovered/Not Resolved]
  - Localised infection [Not Recovered/Not Resolved]
  - Toe amputation [Not Recovered/Not Resolved]
  - Gangrene [Not Recovered/Not Resolved]
  - Back pain [Not Recovered/Not Resolved]
